FAERS Safety Report 11379790 (Version 1)
Quarter: 2015Q3

REPORT INFORMATION
  Report Type: Spontaneous
  Country: US (occurrence: None)
  Receive Date: 20150813
  Receipt Date: 20150813
  Transmission Date: 20151125
  Serious: No
  Sender: FDA-Public Use
  Company Number: None

PATIENT
  Age: 31 Year
  Sex: Male
  Weight: 61.24 kg

DRUGS (6)
  1. FIBER GUMMIES [Concomitant]
  2. SODEIUM SULFACTAMINE [Concomitant]
  3. SOOLANTRA [Concomitant]
     Active Substance: IVERMECTIN
  4. KETOCONAZOLE CREAM [Concomitant]
     Active Substance: KETOCONAZOLE
  5. RABEPRAZOLE [Concomitant]
     Active Substance: RABEPRAZOLE
  6. DOXYCYCLINE HYCLATE 100MG [Suspect]
     Active Substance: DOXYCYCLINE HYCLATE
     Indication: SKIN DISORDER
     Dosage: 1 PILL
     Route: 048
     Dates: start: 20150801, end: 20150803

REACTIONS (3)
  - Flatulence [None]
  - Diarrhoea [None]
  - Abdominal discomfort [None]

NARRATIVE: CASE EVENT DATE: 20150810
